FAERS Safety Report 17441689 (Version 1)
Quarter: 2020Q1

REPORT INFORMATION
  Report Type: Report from Study
  Country: CA (occurrence: CA)
  Receive Date: 20200220
  Receipt Date: 20200220
  Transmission Date: 20200409
  Serious: Yes (Death)
  Sender: FDA-Public Use
  Company Number: CA-REGENERON PHARMACEUTICALS, INC.-2020-19900

PATIENT

DRUGS (1)
  1. EYLEA [Suspect]
     Active Substance: AFLIBERCEPT
     Indication: DIABETIC RETINAL OEDEMA
     Dosage: TOTAL EYLEA DOSE AND LAST DOSE WERE UNKNOWN
     Route: 031
     Dates: start: 20190312

REACTIONS (2)
  - Death [Fatal]
  - Diabetic retinal oedema [Unknown]

NARRATIVE: CASE EVENT DATE: 20200212
